FAERS Safety Report 25235009 (Version 1)
Quarter: 2025Q2

REPORT INFORMATION
  Report Type: Other
  Country: CA (occurrence: CA)
  Receive Date: 20250424
  Receipt Date: 20250424
  Transmission Date: 20250716
  Serious: Yes (Hospitalization)
  Sender: PFIZER
  Company Number: CA-PFIZER INC-202500085532

PATIENT
  Age: 21 Year

DRUGS (9)
  1. HYDROMORPHONE HYDROCHLORIDE [Suspect]
     Active Substance: HYDROMORPHONE HYDROCHLORIDE
  2. FENTANYL [Suspect]
     Active Substance: FENTANYL
  3. ACETAMINOPHEN [Concomitant]
     Active Substance: ACETAMINOPHEN
  4. ASPIRIN [Concomitant]
     Active Substance: ASPIRIN
     Route: 065
  5. IBUPROFEN [Concomitant]
     Active Substance: IBUPROFEN
  6. KETOROLAC [Concomitant]
     Active Substance: KETOROLAC TROMETHAMINE
  7. MIDAZOLAM [Concomitant]
     Active Substance: MIDAZOLAM
  8. PROPOFOL [Concomitant]
     Active Substance: PROPOFOL
     Route: 065
  9. ZOPICLONE [Concomitant]
     Active Substance: ZOPICLONE

REACTIONS (4)
  - Brain fog [Recovered/Resolved]
  - Constipation [Recovered/Resolved]
  - Emotional distress [Recovered/Resolved]
  - Drug ineffective [Unknown]
